FAERS Safety Report 11315502 (Version 2)
Quarter: 2015Q4

REPORT INFORMATION
  Report Type: Spontaneous
  Country: US (occurrence: US)
  Receive Date: 20150728
  Receipt Date: 20151002
  Transmission Date: 20160304
  Serious: Yes (Life-Threatening, Other)
  Sender: FDA-Public Use
  Company Number: US-ROCHE-1613369

PATIENT
  Age: 71 Year
  Sex: Female
  Weight: 80 kg

DRUGS (9)
  1. ASPIRIN. [Concomitant]
     Active Substance: ASPIRIN
     Indication: CEREBROVASCULAR ACCIDENT PROPHYLAXIS
     Route: 048
     Dates: start: 20121115
  2. AMLODIPINE [Concomitant]
     Active Substance: AMLODIPINE BESYLATE
     Indication: HYPERTENSION
     Route: 048
     Dates: start: 20141026
  3. ACTIVASE [Suspect]
     Active Substance: ALTEPLASE
     Indication: THROMBOLYSIS
     Dosage: DATE OF LAST DOSE PRIOR TO SAE: 10/JUL/2015
     Route: 040
     Dates: start: 20150710, end: 20150710
  4. ACTIVASE [Suspect]
     Active Substance: ALTEPLASE
     Route: 042
     Dates: start: 20150710, end: 20150710
  5. CITALOPRAM [Concomitant]
     Active Substance: CITALOPRAM HYDROBROMIDE
     Indication: DEPRESSION
     Route: 048
     Dates: start: 20150608
  6. LYRICA [Concomitant]
     Active Substance: PREGABALIN
     Route: 048
  7. LANTUS [Concomitant]
     Active Substance: INSULIN GLARGINE
     Indication: DIABETES MELLITUS
     Dosage: 21 UNITS
     Route: 058
     Dates: start: 20120921
  8. LEVOTHYROXINE. [Concomitant]
     Active Substance: LEVOTHYROXINE
     Indication: HYPOTHYROIDISM
     Route: 048
     Dates: start: 20080222
  9. LISINOPRIL. [Concomitant]
     Active Substance: LISINOPRIL
     Indication: HYPERTENSION
     Route: 048
     Dates: start: 20080222

REACTIONS (3)
  - Pharyngeal oedema [Recovered/Resolved]
  - Lip swelling [Recovering/Resolving]
  - Dyspnoea [Recovered/Resolved]

NARRATIVE: CASE EVENT DATE: 20150710
